FAERS Safety Report 7394489-6 (Version None)
Quarter: 2011Q2

REPORT INFORMATION
  Report Type: 
  Country: None (occurrence: None)
  Receive Date: 20110405
  Receipt Date: 20110324
  Transmission Date: 20111010
  Serious: Yes (Other)
  Sender: FDA-Public Use
  Company Number: PHHY2010CA89796

PATIENT
  Sex: Female

DRUGS (1)
  1. ACLASTA [Suspect]
     Indication: OSTEOPOROSIS
     Route: 042
     Dates: start: 20101124

REACTIONS (8)
  - WAIST CIRCUMFERENCE INCREASED [None]
  - NECK PAIN [None]
  - BREAST SWELLING [None]
  - ARTHRALGIA [None]
  - OEDEMA PERIPHERAL [None]
  - HEADACHE [None]
  - PAIN [None]
  - JOINT SWELLING [None]
